FAERS Safety Report 19445662 (Version 1)
Quarter: 2021Q2

REPORT INFORMATION
  Report Type: Spontaneous
  Country: US (occurrence: US)
  Receive Date: 20210622
  Receipt Date: 20210622
  Transmission Date: 20210717
  Serious: No
  Sender: FDA-Public Use
  Company Number: US-GLAXOSMITHKLINE-US2021129048

PATIENT
  Age: 46 Year
  Sex: Female

DRUGS (3)
  1. BENLYSTA [Suspect]
     Active Substance: BELIMUMAB
     Indication: PRODUCT USED FOR UNKNOWN INDICATION
     Dosage: UNK( ONCE A WEEK)
     Dates: start: 202004
  2. BENLYSTA [Suspect]
     Active Substance: BELIMUMAB
     Dosage: UNK( ONCE IN 2 WEEK)
     Dates: start: 20210416
  3. COVID?19 VACCINE NOS. [Suspect]
     Active Substance: COVID-19 VACCINE NOS
     Indication: COVID-19 PROPHYLAXIS

REACTIONS (18)
  - Off label use [Unknown]
  - Wrong technique in product usage process [Unknown]
  - Burning sensation [Unknown]
  - Myalgia [Unknown]
  - Insomnia [Unknown]
  - Skin discolouration [Not Recovered/Not Resolved]
  - Hypoaesthesia [Unknown]
  - Headache [Unknown]
  - Inappropriate schedule of product administration [Unknown]
  - Arthralgia [Unknown]
  - Paraesthesia [Unknown]
  - Dry skin [Not Recovered/Not Resolved]
  - Depressed mood [Unknown]
  - Irritability [Unknown]
  - Pain [Unknown]
  - Pruritus [Unknown]
  - Device use error [Unknown]
  - Underdose [Unknown]

NARRATIVE: CASE EVENT DATE: 20210416
